FAERS Safety Report 9452959 (Version 1)
Quarter: 2013Q3

REPORT INFORMATION
  Report Type: Spontaneous
  Country: US (occurrence: US)
  Receive Date: 20130812
  Receipt Date: 20130812
  Transmission Date: 20140515
  Serious: Yes (Other)
  Sender: FDA-Public Use
  Company Number: US-ASTELLAS-2013US008353

PATIENT
  Age: 65 Year
  Sex: Female
  Weight: 66 kg

DRUGS (12)
  1. TARCEVA [Suspect]
     Indication: NON-SMALL CELL LUNG CANCER
     Dosage: 100 MG, UID/QD
     Route: 048
     Dates: start: 201207, end: 201211
  2. TARCEVA [Suspect]
     Dosage: 150 MG, UID/QD
     Route: 048
     Dates: start: 201106, end: 201206
  3. TYLENOL                            /00020001/ [Concomitant]
     Indication: PAIN
     Dosage: 1000 MG, UID/QD
     Route: 048
  4. AMITRIPTYLINE                      /00002202/ [Concomitant]
     Indication: PRODUCT USED FOR UNKNOWN INDICATION
     Dosage: 30 MG, UID/QD
     Route: 048
  5. CHOLECALCIFEROL [Concomitant]
     Indication: PRODUCT USED FOR UNKNOWN INDICATION
     Dosage: UNK
     Route: 048
  6. NEXIUM                             /01479302/ [Concomitant]
     Indication: PRODUCT USED FOR UNKNOWN INDICATION
     Dosage: 40 MG, UID/QD
     Route: 048
  7. LUNESTA [Concomitant]
     Indication: PRODUCT USED FOR UNKNOWN INDICATION
     Dosage: 2 MG, UID/QD
     Route: 048
  8. ADVAIR [Concomitant]
     Indication: DYSPNOEA
     Dosage: UNK
     Route: 055
  9. AVONEX [Concomitant]
     Indication: PRODUCT USED FOR UNKNOWN INDICATION
     Dosage: 30MCG/0.5ML
     Route: 030
  10. ROYAL JELLY [Concomitant]
     Indication: PRODUCT USED FOR UNKNOWN INDICATION
     Dosage: 1 UNK, UNKNOWN/D
     Route: 048
  11. MUPIROCIN [Concomitant]
     Indication: PRODUCT USED FOR UNKNOWN INDICATION
     Dosage: UNK
     Route: 061
  12. VITAMIN E                          /00110501/ [Concomitant]
     Indication: PRODUCT USED FOR UNKNOWN INDICATION
     Dosage: 800 IU, UID/QD
     Route: 048

REACTIONS (8)
  - Deafness [Unknown]
  - Alopecia [Unknown]
  - Decreased appetite [Unknown]
  - Asthenia [Unknown]
  - Weight decreased [Unknown]
  - Diarrhoea [Unknown]
  - Fatigue [Unknown]
  - Cough [Unknown]
